FAERS Safety Report 7392417-0 (Version None)
Quarter: 2011Q2

REPORT INFORMATION
  Report Type: 
  Country: None (occurrence: None)
  Receive Date: 20110404
  Receipt Date: 20110329
  Transmission Date: 20111010
  Serious: Yes (Hospitalization, Other)
  Sender: FDA-Public Use
  Company Number: US-PFIZER INC-2011013164

PATIENT
  Sex: Female

DRUGS (7)
  1. DILANTIN KAPSEAL [Suspect]
     Indication: CONVULSION PROPHYLAXIS
     Dosage: 200 MG, 2X/DAY
     Route: 048
     Dates: start: 20041228, end: 20050101
  2. TYLENOL W/ CODEINE NO. 3 [Concomitant]
  3. ATENOLOL [Concomitant]
  4. NIMODIPINE [Concomitant]
  5. PEPCID [Concomitant]
  6. COLACE [Concomitant]
  7. DILANTIN-125 [Suspect]
     Indication: CONVULSION PROPHYLAXIS
     Dosage: 200 MG, 2X/DAY
     Route: 048
     Dates: start: 20041201, end: 20050101

REACTIONS (1)
  - STEVENS-JOHNSON SYNDROME [None]
